FAERS Safety Report 4369406-3 (Version None)
Quarter: 2004Q2

REPORT INFORMATION
  Report Type: 
  Country: None (occurrence: None)
  Receive Date: 20040527
  Receipt Date: 20040307
  Transmission Date: 20050107
  Serious: Yes (Hospitalization, Other)
  Sender: FDA-Public Use
  Company Number: USA040567005

PATIENT
  Age: 51 Year
  Sex: Female

DRUGS (5)
  1. PROZAC [Suspect]
     Indication: DEPRESSION
     Dosage: 20 MG DAY
  2. XANAX [Concomitant]
  3. COUMADIN [Concomitant]
  4. PRAVACHOL [Concomitant]
  5. INDERAL [Concomitant]

REACTIONS (16)
  - ANGINA PECTORIS [None]
  - ANGIOPATHY [None]
  - BLINDNESS TRANSIENT [None]
  - BLINDNESS UNILATERAL [None]
  - CAROTID ARTERY OCCLUSION [None]
  - DEMYELINATION [None]
  - DIZZINESS [None]
  - ECONOMIC PROBLEM [None]
  - EYE DISORDER [None]
  - EYE HAEMORRHAGE [None]
  - EYE OPERATION COMPLICATION [None]
  - HOMELESS [None]
  - MULTIPLE SCLEROSIS [None]
  - RETINAL VASCULAR THROMBOSIS [None]
  - SCOTOMA [None]
  - VISUAL DISTURBANCE [None]
